FAERS Safety Report 6448058-2 (Version None)
Quarter: 2009Q4

REPORT INFORMATION
  Report Type: 
  Country: None (occurrence: None)
  Receive Date: 20091120
  Receipt Date: 20091020
  Transmission Date: 20100525
  Serious: No
  Sender: FDA-Public Use
  Company Number: US-BAYER-200936870NA

PATIENT
  Age: 33 Year
  Sex: Female
  Weight: 107 kg

DRUGS (2)
  1. MIRENA [Suspect]
     Indication: CONTRACEPTION
     Dosage: CONTINUOUS
     Route: 015
     Dates: start: 20080301, end: 20091009
  2. EFFEXOR XR [Concomitant]

REACTIONS (4)
  - ADNEXA UTERI PAIN [None]
  - BREAST MASS [None]
  - MEDICAL DEVICE COMPLICATION [None]
  - PREGNANCY WITH CONTRACEPTIVE DEVICE [None]
